FAERS Safety Report 7808599-X (Version None)
Quarter: 2011Q4

REPORT INFORMATION
  Report Type: 
  Country: None (occurrence: None)
  Receive Date: 20111012
  Receipt Date: 20111007
  Transmission Date: 20120403
  Serious: No
  Sender: FDA-Public Use
  Company Number: US-PFIZER INC-2011240230

PATIENT
  Sex: Male

DRUGS (2)
  1. LIPITOR [Suspect]
     Dosage: 40 MG, ONCE A DAY
     Route: 048
  2. LIPITOR [Suspect]
     Dosage: UNK
     Route: 048

REACTIONS (2)
  - MALAISE [None]
  - ABDOMINAL PAIN UPPER [None]
